FAERS Safety Report 9558234 (Version 1)
Quarter: 2013Q3

REPORT INFORMATION
  Report Type: Report from Study
  Country: GR (occurrence: GR)
  Receive Date: 20130926
  Receipt Date: 20130926
  Transmission Date: 20140515
  Serious: Yes (Other)
  Sender: FDA-Public Use
  Company Number: GR-US-EMD SERONO, INC.-7238512

PATIENT
  Age: 51 Year
  Sex: Female

DRUGS (2)
  1. REBIF [Suspect]
     Indication: MULTIPLE SCLEROSIS
     Route: 058
     Dates: start: 201205
  2. FROVATRIPTAN [Concomitant]
     Indication: MIGRAINE
     Route: 048
     Dates: start: 2000

REACTIONS (2)
  - Pyramidal tract syndrome [Recovering/Resolving]
  - Multiple sclerosis relapse [Recovering/Resolving]
